FAERS Safety Report 8595888-7 (Version None)
Quarter: 2012Q3

REPORT INFORMATION
  Report Type: 
  Country: None (occurrence: None)
  Receive Date: 20120815
  Receipt Date: 19911113
  Transmission Date: 20120928
  Serious: Yes (Death)
  Sender: FDA-Public Use
  Company Number: US-ROCHE-1100678

PATIENT
  Sex: Female

DRUGS (7)
  1. PHENERGAN HCL [Concomitant]
  2. DOPAMINE HCL [Concomitant]
     Dosage: 400 MG/250 CC
     Route: 011
  3. LIDOCAINE [Concomitant]
     Dosage: 2MG/MIN TO 4 MG/MIN
  4. TENORETIC [Concomitant]
     Dosage: 1 Q.A.M
  5. ACTIVASE [Suspect]
  6. HEPARIN [Concomitant]
     Dosage: 5000 UNITS INCREASED TO 8000 UNITS
     Route: 041
  7. ACTIVASE [Suspect]
     Indication: ACUTE MYOCARDIAL INFARCTION

REACTIONS (1)
  - DEATH [None]
